FAERS Safety Report 6187200-8 (Version None)
Quarter: 2009Q2

REPORT INFORMATION
  Report Type: 
  Country: None (occurrence: None)
  Receive Date: 20090512
  Receipt Date: 20090429
  Transmission Date: 20091009
  Serious: Yes (Other)
  Sender: FDA-Public Use
  Company Number: PHHY2009KR16410

PATIENT
  Age: 56 Year
  Sex: Male

DRUGS (3)
  1. PAMIDRONATE DISODIUM [Suspect]
     Dosage: 45 MG, QMO
  2. CHEMOTHERAPEUTICS NOS [Concomitant]
  3. GLUCOCORTICOIDS [Concomitant]

REACTIONS (4)
  - ABSCESS DRAINAGE [None]
  - OSTEONECROSIS [None]
  - PAIN [None]
  - TOOTH LOSS [None]
